FAERS Safety Report 17908251 (Version 1)
Quarter: 2020Q2

REPORT INFORMATION
  Report Type: Spontaneous
  Country: CN (occurrence: CN)
  Receive Date: 20200617
  Receipt Date: 20200617
  Transmission Date: 20200714
  Serious: Yes (Other)
  Sender: FDA-Public Use
  Company Number: CN-PFIZER INC-2020231368

PATIENT
  Age: 26 Year
  Sex: Male
  Weight: 67 kg

DRUGS (7)
  1. SODIUM CHLORIDE. [Concomitant]
     Active Substance: SODIUM CHLORIDE
     Dosage: 250 ML, 2X/DAY
     Route: 041
     Dates: start: 20200602, end: 20200605
  2. SOLU-MEDROL [Suspect]
     Active Substance: METHYLPREDNISOLONE SODIUM SUCCINATE
     Indication: VOCAL CORD POLYP
     Dosage: 80 MG, 1X/DAY
     Route: 041
     Dates: start: 20200602, end: 20200603
  3. GLUCOSE INJECTION [Concomitant]
     Active Substance: DEXTROSE
     Indication: VEHICLE SOLUTION USE
     Dosage: 500 ML, 1X/DAY
     Route: 041
     Dates: start: 20200602, end: 20200605
  4. PULMICORT TURBUHALER [Concomitant]
     Active Substance: BUDESONIDE
     Indication: VOCAL CORD POLYP
     Dosage: 2 MG, 2X/DAY
     Dates: start: 20200602, end: 20200605
  5. SODIUM CHLORIDE. [Concomitant]
     Active Substance: SODIUM CHLORIDE
     Indication: VEHICLE SOLUTION USE
     Dosage: 100 ML, 1X/DAY
     Route: 041
     Dates: start: 20200602, end: 20200603
  6. CEFAZOLIN SODIUM. [Concomitant]
     Active Substance: CEFAZOLIN SODIUM
     Indication: VOCAL CORD POLYP
     Dosage: 2 G, 2X/DAY
     Route: 041
     Dates: start: 20200602, end: 20200605
  7. VITAMIN C [Concomitant]
     Active Substance: ASCORBIC ACID
     Indication: VOCAL CORD POLYP
     Dosage: 2 G, 1X/DAY
     Route: 041
     Dates: start: 20200602, end: 20200605

REACTIONS (2)
  - Dyspepsia [Recovered/Resolved]
  - Abdominal pain upper [Recovered/Resolved]

NARRATIVE: CASE EVENT DATE: 20200604
